FAERS Safety Report 15669098 (Version 2)
Quarter: 2020Q4

REPORT INFORMATION
  Report Type: Report from Study
  Country: DE (occurrence: DE)
  Receive Date: 20181129
  Receipt Date: 20201109
  Transmission Date: 20210113
  Serious: Yes (Hospitalization)
  Sender: FDA-Public Use
  Company Number: DE-ACCORD-094200

PATIENT
  Age: 68 Year
  Sex: Male
  Weight: 70 kg

DRUGS (8)
  1. AVASTIN [Interacting]
     Active Substance: BEVACIZUMAB
     Indication: COLORECTAL CANCER METASTATIC
     Dosage: FORTNIGHTLY?DATE OF LAST DOSE PRIOR TO SAE : 22/DEC/2014
     Route: 042
     Dates: start: 20140812
  2. SPIRIVA [Concomitant]
     Active Substance: TIOTROPIUM BROMIDE MONOHYDRATE
     Indication: LUNG DISORDER
     Dosage: DAILY DOSE: 18 UG EVERY DAYS
     Route: 048
  3. SALBUTAMOL [Concomitant]
     Active Substance: ALBUTEROL
     Indication: LUNG DISORDER
     Route: 048
  4. CETUXIMAB. [Interacting]
     Active Substance: CETUXIMAB
     Indication: COLORECTAL CANCER METASTATIC
     Route: 065
  5. BEVACIZUMAB. [Suspect]
     Active Substance: BEVACIZUMAB
     Indication: COLORECTAL CANCER METASTATIC
     Dosage: FORTNIGHTLY DATE OF LAST DOSE PRIOR TO SAE : 22/DEC/2014
     Route: 042
     Dates: start: 20140812
  6. FOLINIC ACID [Concomitant]
     Active Substance: LEUCOVORIN
     Indication: COLORECTAL CANCER
     Dosage: 721-724 MG
     Route: 042
     Dates: start: 20140812, end: 20141222
  7. IRINOTECAN [Concomitant]
     Active Substance: IRINOTECAN
     Indication: COLORECTAL CANCER
     Dosage: DAILY DOSE: 325.8 MG MILLGRAM(S) EVERY 3 WEEKS
     Route: 042
     Dates: start: 20140812, end: 20141203
  8. FLUOROURACIL. [Suspect]
     Active Substance: FLUOROURACIL
     Indication: COLORECTAL CANCER
     Dosage: DAILY DOSE: 4344 MG MILLGRAM(S) EVERY 2 WEEKS,DAILY DOSE:2500 MG MILLGRAM(S) EVERY 2 WEEKS
     Route: 041
     Dates: start: 20140812, end: 20141205

REACTIONS (4)
  - Diarrhoea [Recovering/Resolving]
  - Drug hypersensitivity [Recovered/Resolved]
  - Drug interaction [Unknown]
  - Constipation [Recovered/Resolved]

NARRATIVE: CASE EVENT DATE: 20140816
